FAERS Safety Report 4372132-8 (Version None)
Quarter: 2004Q2

REPORT INFORMATION
  Report Type: 
  Country: None (occurrence: None)
  Receive Date: 20040607
  Receipt Date: 20020516
  Transmission Date: 20050107
  Serious: Yes (Death, Life-Threatening, Hospitalization, Disabling, Other)
  Sender: FDA-Public Use
  Company Number: US-MERCK-0205USA02086

PATIENT
  Age: 91 Year
  Sex: Female
  Weight: 40 kg

DRUGS (11)
  1. VALIUM [Concomitant]
     Indication: FACIAL NERVE DISORDER
     Route: 065
     Dates: start: 19830101, end: 20020101
  2. VASOTEC [Concomitant]
     Indication: HYPERTENSION
     Route: 048
  3. VASOTEC [Concomitant]
     Route: 048
  4. FERROUS SULFATE [Concomitant]
     Route: 065
  5. HYDRODIURIL [Concomitant]
     Route: 048
  6. MORPHINE [Concomitant]
     Route: 065
     Dates: end: 20020101
  7. DELTASONE [Concomitant]
     Route: 065
  8. VIOXX [Suspect]
     Indication: OSTEOPOROSIS
     Route: 048
     Dates: start: 20001117, end: 20010101
  9. MIACALCIN [Concomitant]
     Route: 065
  10. TIMOPTIC [Concomitant]
     Indication: GLAUCOMA
     Route: 047
  11. ULTRAM [Concomitant]
     Route: 065

REACTIONS (34)
  - ABDOMINAL DISCOMFORT [None]
  - ANAEMIA [None]
  - BALANCE DISORDER [None]
  - CARDIAC FAILURE [None]
  - CEREBRAL ATHEROSCLEROSIS [None]
  - CHRONIC OBSTRUCTIVE AIRWAYS DISEASE [None]
  - CONSTIPATION [None]
  - DEATH [None]
  - DECUBITUS ULCER [None]
  - DEPRESSION [None]
  - DRY SKIN [None]
  - DYSPNOEA [None]
  - FALL [None]
  - GASTROOESOPHAGEAL REFLUX DISEASE [None]
  - HAEMATOCHEZIA [None]
  - HAEMATOMA [None]
  - HAEMORRHAGE [None]
  - HYPERKERATOSIS [None]
  - HYPOACUSIS [None]
  - INFLAMMATION [None]
  - MUSCLE SPASMS [None]
  - NAUSEA [None]
  - PAIN [None]
  - PELVIC FRACTURE [None]
  - PERIPHERAL VASCULAR DISORDER [None]
  - PULMONARY MASS [None]
  - RESPIRATORY TRACT INFECTION [None]
  - SENILE DEMENTIA [None]
  - SPINAL COMPRESSION FRACTURE [None]
  - SYNCOPE [None]
  - TINEA PEDIS [None]
  - VULVAL ERYTHEMA [None]
  - VULVAL OEDEMA [None]
  - WEIGHT DECREASED [None]
